FAERS Safety Report 18891600 (Version 2)
Quarter: 2021Q2

REPORT INFORMATION
  Report Type: Spontaneous
  Country: PL (occurrence: PL)
  Receive Date: 20210215
  Receipt Date: 20210407
  Transmission Date: 20210717
  Serious: Yes (Other)
  Sender: FDA-Public Use
  Company Number: PL-EMD SERONO-9218525

PATIENT
  Age: 48 Year
  Sex: Female

DRUGS (1)
  1. REBIF [Suspect]
     Active Substance: INTERFERON BETA-1A
     Indication: MULTIPLE SCLEROSIS
     Dates: start: 2016

REACTIONS (4)
  - Asthenia [Recovering/Resolving]
  - SARS-CoV-2 test positive [Unknown]
  - Condition aggravated [Recovering/Resolving]
  - Paraparesis [Recovering/Resolving]

NARRATIVE: CASE EVENT DATE: 202012
